FAERS Safety Report 6934569-X (Version None)
Quarter: 2010Q3

REPORT INFORMATION
  Report Type: 
  Country: None (occurrence: None)
  Receive Date: 20100820
  Receipt Date: 20100812
  Transmission Date: 20110219
  Serious: Yes (Hospitalization)
  Sender: FDA-Public Use
  Company Number: US-US-EMD SERONO, INC.-7007399

PATIENT
  Sex: Male
  Weight: 90 kg

DRUGS (2)
  1. REBIF [Suspect]
     Indication: MULTIPLE SCLEROSIS
     Route: 058
     Dates: start: 20080101, end: 20100810
  2. ATENOLOL [Concomitant]
     Indication: HYPERTENSION

REACTIONS (5)
  - FALL [None]
  - INFECTION [None]
  - INJECTION SITE INFECTION [None]
  - INJECTION SITE REACTION [None]
  - MULTIPLE SCLEROSIS RELAPSE [None]
